FAERS Safety Report 7633741-3 (Version None)
Quarter: 2011Q3

REPORT INFORMATION
  Report Type: 
  Country: None (occurrence: None)
  Receive Date: 20110718
  Receipt Date: 20110713
  Transmission Date: 20111222
  Serious: Yes (Other)
  Sender: FDA-Public Use
  Company Number: ACO_21694_2011

PATIENT
  Age: 63 Year
  Sex: Female
  Weight: 82.1 kg

DRUGS (9)
  1. BACLOFEN [Concomitant]
  2. PROVIGIL [Concomitant]
  3. AMPYRA [Suspect]
     Indication: GAIT DISTURBANCE
     Dosage: 10 MG, BID, ORAL
     Route: 048
     Dates: end: 20110524
  4. AMPYRA [Suspect]
     Indication: GAIT DISTURBANCE
     Dosage: 10 MG, BID, ORAL
     Route: 048
     Dates: start: 20100730
  5. AMITRIPTYLINE HCL [Concomitant]
  6. LISINOPRIL HCTZ (HYDROCHLOROTHIAZIDE, LISINOPRIL) [Concomitant]
  7. VITAMIN NOS (VITAMIN NOS) [Concomitant]
  8. XANAX [Concomitant]
  9. IBUPROFEN [Concomitant]

REACTIONS (12)
  - BRONCHITIS [None]
  - HYPOAESTHESIA [None]
  - COUGH [None]
  - ASTHENIA [None]
  - BALANCE DISORDER [None]
  - SWELLING [None]
  - FEELING ABNORMAL [None]
  - INAPPROPRIATE SCHEDULE OF DRUG ADMINISTRATION [None]
  - PULMONARY CONGESTION [None]
  - THERAPEUTIC RESPONSE UNEXPECTED [None]
  - MULTIPLE SCLEROSIS RELAPSE [None]
  - GAIT DISTURBANCE [None]
